FAERS Safety Report 7933931-6 (Version None)
Quarter: 2011Q4

REPORT INFORMATION
  Report Type: 
  Country: None (occurrence: None)
  Receive Date: 20111122
  Receipt Date: 20111116
  Transmission Date: 20120403
  Serious: Yes (Other)
  Sender: FDA-Public Use
  Company Number: BR-JNJFOC-2010026846

PATIENT
  Sex: Female
  Weight: 67 kg

DRUGS (6)
  1. VYTORIN [Concomitant]
     Indication: BLOOD CHOLESTEROL
     Dosage: DAILY DOSE TEXT: UNKNOWN
     Route: 048
  2. NICORETTE [Suspect]
     Indication: SMOKING CESSATION THERAPY
     Dosage: CHEWS ALMOST 12 GUMS DAILY
     Route: 048
     Dates: start: 20070101
  3. TICLOPIDINE HCL [Concomitant]
     Indication: PRODUCT USED FOR UNKNOWN INDICATION
     Dosage: DAILY DOSE TEXT: UNKNOWN
     Route: 048
  4. LOSARTAN POTASSIUM [Concomitant]
     Indication: HYPERTENSION
     Dosage: DAILY DOSE TEXT: 50MG TWICE A DAY
     Route: 048
  5. CARVEDILOL [Concomitant]
     Indication: CARDIAC DISORDER
     Dosage: DAILY DOSE TEXT: UNKNOWN
     Route: 048
  6. CLONAZEPAM [Concomitant]
     Indication: HYPERTENSION
     Dosage: DAILY DOSE TEXT: 2.5MG FOUR DROPS PER DAY
     Route: 048

REACTIONS (7)
  - HYPERTENSION [None]
  - INCORRECT DRUG ADMINISTRATION DURATION [None]
  - EYE DISORDER [None]
  - EMOTIONAL DISORDER [None]
  - MALAISE [None]
  - DEPENDENCE [None]
  - HYPOAESTHESIA [None]
